FAERS Safety Report 4970079-7 (Version None)
Quarter: 2006Q2

REPORT INFORMATION
  Report Type: 
  Country: None (occurrence: None)
  Receive Date: 20060406
  Receipt Date: 20060322
  Transmission Date: 20061013
  Serious: Yes (Death, Hospitalization, Other)
  Sender: FDA-Public Use
  Company Number: US200603003334

PATIENT
  Age: 64 Year
  Sex: Male

DRUGS (14)
  1. ALIMTA [Suspect]
     Indication: MESOTHELIOMA MALIGNANT
     Dates: start: 20060210
  2. CISPLATIN [Concomitant]
  3. PRILOSEC [Concomitant]
  4. INDOCIN [Concomitant]
  5. MULTIVITAMINS (ASCORBIC ACID, ERGOCALCIFEROL, FOLIC ACID, NICOTINAMIDE [Concomitant]
  6. NEURONTIN [Concomitant]
  7. METFORMIN HCL [Concomitant]
  8. GLIPIZIDE [Concomitant]
  9. LISINOPRIL [Concomitant]
  10. PERCOCET [Concomitant]
  11. ZOCOR [Concomitant]
  12. COLACE (DOCUSATE SODIUM) [Concomitant]
  13. GEMFIBROZIL [Concomitant]
  14. PANTOPRAZOLE SODIUM [Concomitant]

REACTIONS (11)
  - ANAEMIA [None]
  - CARDIAC FAILURE CONGESTIVE [None]
  - DISEASE PROGRESSION [None]
  - HAEMORRHOIDAL HAEMORRHAGE [None]
  - NEUTROPENIA [None]
  - PAIN [None]
  - PHARMACEUTICAL PRODUCT COMPLAINT [None]
  - RENAL FAILURE ACUTE [None]
  - RESPIRATORY FAILURE [None]
  - THROMBOCYTOPENIA [None]
  - WHITE BLOOD CELL COUNT DECREASED [None]
